FAERS Safety Report 14550178 (Version 1)
Quarter: 2018Q1

REPORT INFORMATION
  Report Type: Report from Study
  Country: US (occurrence: US)
  Receive Date: 20180219
  Receipt Date: 20180219
  Transmission Date: 20180509
  Serious: No
  Sender: FDA-Public Use
  Company Number: US-ACADIA PHARMACEUTICALS INC.-ACA-2017-006732

PATIENT
  Sex: Male
  Weight: 73.92 kg

DRUGS (3)
  1. STATIN [Concomitant]
     Active Substance: UNSPECIFIED INGREDIENT
     Indication: PRODUCT USED FOR UNKNOWN INDICATION
     Dosage: 1 DF, QD
     Dates: start: 201612
  2. RYTARY [Concomitant]
     Active Substance: CARBIDOPA\LEVODOPA
     Indication: PRODUCT USED FOR UNKNOWN INDICATION
     Dosage: ONE TABLET THREE TIMES PER DAY
     Dates: start: 201612
  3. NUPLAZID [Suspect]
     Active Substance: PIMAVANSERIN TARTRATE
     Indication: HALLUCINATION
     Dosage: 34 MG, QD
     Route: 048
     Dates: start: 20171204, end: 20171205

REACTIONS (5)
  - Nightmare [Recovered/Resolved]
  - Hallucination [Recovered/Resolved]
  - Headache [Recovered/Resolved]
  - Sleep disorder [Unknown]
  - Off label use [Unknown]
